FAERS Safety Report 5408040-0 (Version None)
Quarter: 2007Q3

REPORT INFORMATION
  Report Type: 
  Country: None (occurrence: None)
  Receive Date: 20070808
  Receipt Date: 20070727
  Transmission Date: 20080115
  Serious: Yes (Other)
  Sender: FDA-Public Use
  Company Number: PHHO2006AT08370

PATIENT
  Sex: Female

DRUGS (7)
  1. DEPAKENE [Concomitant]
  2. TRILEPTAL [Suspect]
     Indication: SCHIZOPHRENIA, PARANOID TYPE
     Dosage: 300 MG, UNK
     Dates: start: 20060324, end: 20060327
  3. TRILEPTAL [Suspect]
     Dosage: 600 MG, UNK
     Dates: start: 20060328, end: 20060330
  4. TRILEPTAL [Suspect]
     Dosage: 900 MG, UNK
     Dates: start: 20050331, end: 20060403
  5. TRILEPTAL [Suspect]
     Dosage: 300 MG, UNK
     Dates: start: 20060404
  6. PSYCHOPAX [Concomitant]
  7. GEWACALM [Concomitant]
     Dates: start: 20060411

REACTIONS (2)
  - HYPOCHLORAEMIA [None]
  - HYPONATRAEMIA [None]
